FAERS Safety Report 10237301 (Version 1)
Quarter: 2014Q2

REPORT INFORMATION
  Report Type: Report from Study
  Country: US (occurrence: US)
  Receive Date: 20140613
  Receipt Date: 20140613
  Transmission Date: 20141212
  Serious: Yes (Hospitalization, Other)
  Sender: FDA-Public Use
  Company Number: US-ASTRAZENECA-2014SE39890

PATIENT
  Age: 39 Year
  Sex: Female
  Weight: 136.1 kg

DRUGS (1)
  1. BRILINTA [Suspect]
     Indication: ACUTE CORONARY SYNDROME
     Route: 048
     Dates: start: 20140503

REACTIONS (12)
  - Haemorrhage [Unknown]
  - Uterine haemorrhage [Unknown]
  - Anaemia [Unknown]
  - Myocardial infarction [Unknown]
  - Dyspnoea [Unknown]
  - Balance disorder [Unknown]
  - Presyncope [Unknown]
  - Fatigue [Unknown]
  - Asthenia [Unknown]
  - Chest discomfort [Unknown]
  - Emotional disorder [Unknown]
  - Somnolence [Unknown]
